FAERS Safety Report 6250493-2 (Version None)
Quarter: 2009Q2

REPORT INFORMATION
  Report Type: 
  Country: None (occurrence: None)
  Receive Date: 20090630
  Receipt Date: 20090617
  Transmission Date: 20091009
  Serious: Yes (Hospitalization)
  Sender: FDA-Public Use
  Company Number: GB-ROCHE-625582

PATIENT
  Sex: Male
  Weight: 95.3 kg

DRUGS (8)
  1. ORLISTAT [Suspect]
     Indication: OBESITY
     Dosage: INDICATION ALSO ENTERED AS TYPE 2 DIABETES
     Route: 048
     Dates: start: 20081107
  2. PREDNISOLONE [Concomitant]
     Indication: DRUG USE FOR UNKNOWN INDICATION
     Route: 048
  3. ASPIRIN [Concomitant]
     Route: 048
     Dates: start: 20000918
  4. PRAVASTATIN [Concomitant]
     Dosage: INDICAITON ALSO REPORTED AS POST CAROTID IMPARTERECTOMY
     Route: 048
     Dates: start: 20021008
  5. AMLODIPINE [Concomitant]
     Indication: HYPERTENSION
     Route: 048
     Dates: start: 20060613
  6. PREGABALIN [Concomitant]
     Indication: HYPERTENSION
     Dosage: INDICATION ALSO REPORTED AS PAIN POST STROKE
     Route: 048
     Dates: start: 20070320
  7. CLOPIDOGREL HYDROGEN SULFATE [Concomitant]
     Dosage: DRUG REPORTED AS CLOPIDOGREL HYDROGEN SULPHATE
     Route: 048
  8. LATANOPROST [Concomitant]
     Indication: GLAUCOMA
     Dosage: TO LEFT EYE
     Route: 047
     Dates: start: 20080121

REACTIONS (6)
  - ACUTE LEFT VENTRICULAR FAILURE [None]
  - CORONARY ARTERY DISEASE [None]
  - MYOCARDIAL INFARCTION [None]
  - PNEUMONIA [None]
  - PULMONARY OEDEMA [None]
  - RENAL IMPAIRMENT [None]
